FAERS Safety Report 9922730 (Version 1)
Quarter: 2014Q1

REPORT INFORMATION
  Report Type: Spontaneous
  Country: US (occurrence: US)
  Receive Date: 20140225
  Receipt Date: 20140225
  Transmission Date: 20141002
  Serious: Yes (Hospitalization)
  Sender: FDA-Public Use
  Company Number: US-ABBVIE-14P-163-1204587-00

PATIENT
  Sex: 0

DRUGS (1)
  1. LEVOTHYROXINE [Suspect]
     Indication: PRODUCT USED FOR UNKNOWN INDICATION
     Dosage: INGESTED 12.0 MG

REACTIONS (1)
  - Exposure via ingestion [Unknown]
